FAERS Safety Report 5519412-8 (Version None)
Quarter: 2007Q4

REPORT INFORMATION
  Report Type: 
  Country: None (occurrence: None)
  Receive Date: 20071116
  Receipt Date: 20071105
  Transmission Date: 20080405
  Serious: Yes (Other)
  Sender: FDA-Public Use
  Company Number: JP-AMGEN-US251196

PATIENT
  Sex: Female

DRUGS (3)
  1. ARANESP [Suspect]
     Indication: DIALYSIS
     Dates: start: 20070806, end: 20070910
  2. CLARITHROMYCIN [Suspect]
     Route: 048
     Dates: start: 20070911, end: 20070914
  3. MUCOSOLVAN [Suspect]
     Route: 048
     Dates: start: 20070905, end: 20070915

REACTIONS (1)
  - HEPATIC FUNCTION ABNORMAL [None]
